FAERS Safety Report 14716711 (Version 4)
Quarter: 2018Q2

REPORT INFORMATION
  Report Type: Spontaneous
  Country: JP (occurrence: JP)
  Receive Date: 20180404
  Receipt Date: 20180628
  Transmission Date: 20180711
  Serious: Yes (Hospitalization, Other)
  Sender: FDA-Public Use
  Company Number: JP-PFIZER INC-2014235633

PATIENT
  Age: 46 Year
  Sex: Male

DRUGS (3)
  1. DEPAKENE [Concomitant]
     Active Substance: VALPROIC ACID
     Indication: EPILEPSY
     Dosage: UNK
     Route: 048
  2. DIAZEPAM. [Concomitant]
     Active Substance: DIAZEPAM
     Indication: EPILEPSY
     Dosage: UNK
     Route: 042
  3. FOSPHENYTOIN SODIUM. [Suspect]
     Active Substance: FOSPHENYTOIN SODIUM
     Indication: EPILEPSY
     Dosage: UNK
     Route: 042

REACTIONS (10)
  - Facial paralysis [Unknown]
  - Cerebral infarction [Unknown]
  - Renal failure [Unknown]
  - Renal impairment [Unknown]
  - Nausea [Unknown]
  - Hemiparesis [Unknown]
  - Brain stem infarction [Unknown]
  - Dizziness [Unknown]
  - Cerebellar infarction [Unknown]
  - Vomiting [Unknown]
